FAERS Safety Report 5570292-4 (Version None)
Quarter: 2007Q4

REPORT INFORMATION
  Report Type: 
  Country: None (occurrence: None)
  Receive Date: 20071219
  Receipt Date: 20071219
  Transmission Date: 20080405
  Serious: No
  Sender: FDA-Public Use
  Company Number: None

PATIENT
  Sex: Female
  Weight: 49.4421 kg

DRUGS (2)
  1. AMBIEN [Suspect]
     Dosage: QHS PO
     Route: 048
  2. ZOCOR [Suspect]
     Dosage: QDAY PO
     Route: 048

REACTIONS (1)
  - STOMACH DISCOMFORT [None]
